FAERS Safety Report 24097762 (Version 3)
Quarter: 2024Q3

REPORT INFORMATION
  Report Type: Spontaneous
  Country: US (occurrence: None)
  Receive Date: 20240716
  Receipt Date: 20240918
  Transmission Date: 20241017
  Serious: Yes (Other)
  Sender: ASTRAZENECA
  Company Number: 2024A155275

PATIENT
  Age: 71 Year
  Sex: Female
  Weight: 78.9 kg

DRUGS (10)
  1. TAGRISSO [Suspect]
     Active Substance: OSIMERTINIB
     Route: 048
  2. OSIMERTINIB [Suspect]
     Active Substance: OSIMERTINIB
     Route: 048
     Dates: start: 20230606
  3. IBANDRONATE SODIUM [Concomitant]
     Active Substance: IBANDRONATE SODIUM
  4. ONDANSETRON [Concomitant]
     Active Substance: ONDANSETRON
     Route: 048
  5. LIDOCAINE\PRILOCAINE [Concomitant]
     Active Substance: LIDOCAINE\PRILOCAINE
     Route: 061
  6. ATENOLO [Concomitant]
     Route: 048
  7. CALCIUM CITRATE [Concomitant]
     Active Substance: CALCIUM CITRATE
  8. SIMVASTATIN [Concomitant]
     Active Substance: SIMVASTATIN
     Route: 048
  9. AMLODIPINE [Concomitant]
     Active Substance: AMLODIPINE BESYLATE
     Route: 048
  10. VITAMINS [Concomitant]
     Active Substance: VITAMINS
     Route: 048

REACTIONS (18)
  - Cerebrovascular accident [Unknown]
  - Cataract [Unknown]
  - Fatigue [Unknown]
  - Nausea [Unknown]
  - Diarrhoea [Unknown]
  - Insomnia [Unknown]
  - Dyspnoea [Unknown]
  - Osteoporosis [Unknown]
  - Sleep apnoea syndrome [Unknown]
  - Lacrimation increased [Unknown]
  - Eye irritation [Unknown]
  - Onycholysis [Unknown]
  - Memory impairment [Unknown]
  - Amnesia [Unknown]
  - Rectal haemorrhage [Unknown]
  - Contusion [Unknown]
  - Blood potassium decreased [Unknown]
  - Glomerular filtration rate decreased [Unknown]
